FAERS Safety Report 18028489 (Version 9)
Quarter: 2021Q4

REPORT INFORMATION
  Report Type: Spontaneous
  Country: US (occurrence: US)
  Receive Date: 20200715
  Receipt Date: 20211104
  Transmission Date: 20220303
  Serious: Yes (Other)
  Sender: FDA-Public Use
  Company Number: US-PFIZER INC-2019024716

PATIENT
  Age: 64 Year
  Sex: Female
  Weight: 128 kg

DRUGS (3)
  1. LYRICA [Suspect]
     Active Substance: PREGABALIN
     Indication: Polyneuropathy
     Dosage: 100 MG, 4X/DAY (1 CAPSULE FOUR TIMES A DAY)
     Route: 048
  2. LYRICA [Suspect]
     Active Substance: PREGABALIN
     Indication: Neuropathy peripheral
     Dosage: 75 MG, 4X/DAY
     Route: 048
  3. LYRICA [Suspect]
     Active Substance: PREGABALIN
     Dosage: 100 MG, 4X/DAY (1 CAPSULE FOUR TIMES A DAY)
     Route: 048

REACTIONS (2)
  - Neoplasm malignant [Unknown]
  - Intentional product misuse [Unknown]
